FAERS Safety Report 14524258 (Version 2)
Quarter: 2018Q3

REPORT INFORMATION
  Report Type: Spontaneous
  Country: US (occurrence: US)
  Receive Date: 20180213
  Receipt Date: 20180822
  Transmission Date: 20181010
  Serious: Yes (Other)
  Sender: FDA-Public Use
  Company Number: US-ASTRAZENECA-2018SE16965

PATIENT
  Age: 59 Year
  Sex: Female
  Weight: 61 kg

DRUGS (84)
  1. PREVACID [Suspect]
     Active Substance: LANSOPRAZOLE
     Indication: GASTROOESOPHAGEAL REFLUX DISEASE
     Dosage: 15 MG
     Route: 065
     Dates: start: 2000, end: 2015
  2. DEXILANT [Suspect]
     Active Substance: DEXLANSOPRAZOLE
     Indication: GASTROOESOPHAGEAL REFLUX DISEASE
     Dosage: 60 MG
     Route: 048
     Dates: start: 2000, end: 2015
  3. NORCO [Concomitant]
     Active Substance: ACETAMINOPHEN\HYDROCODONE BITARTRATE
     Dosage: 7.5 MG TO 500 MG, 1 TABLET BY ORAL ROUTE EVERY 6 HOURS
     Route: 048
     Dates: start: 20120213
  4. LISINOPRIL?HYDROCHLOROTHIAZIDE [Concomitant]
     Active Substance: HYDROCHLOROTHIAZIDE\LISINOPRIL
     Dosage: 20 MG?12.5 MG, 2 TABLETS BY ORAL ROUTE EVERY DAY
     Dates: start: 20110110
  5. MEDROL [Concomitant]
     Active Substance: METHYLPREDNISOLONE
     Dates: start: 20121212
  6. OXYBUTYNIN CHLORIDE. [Concomitant]
     Active Substance: OXYBUTYNIN CHLORIDE
     Route: 048
     Dates: start: 20121217
  7. AMBIEN [Concomitant]
     Active Substance: ZOLPIDEM TARTRATE
     Route: 048
     Dates: start: 20091028
  8. ALPRAZOLAM. [Concomitant]
     Active Substance: ALPRAZOLAM
     Route: 048
     Dates: start: 20110221
  9. AMLODIPINE [Concomitant]
     Active Substance: AMLODIPINE BESYLATE
     Route: 048
     Dates: start: 20071128
  10. METROGEL [Concomitant]
     Active Substance: METRONIDAZOLE
     Dates: start: 20120606
  11. AZITHROMYCIN ANHYDROUS. [Concomitant]
     Active Substance: AZITHROMYCIN ANHYDROUS
     Dates: start: 20120610
  12. PRILOSEC [Suspect]
     Active Substance: OMEPRAZOLE MAGNESIUM
     Indication: GASTROOESOPHAGEAL REFLUX DISEASE
     Dosage: 20 MG
     Route: 048
     Dates: start: 2000, end: 2015
  13. CLONAZEPAM. [Concomitant]
     Active Substance: CLONAZEPAM
     Indication: ANXIETY
     Dates: start: 1996, end: 2006
  14. PAXIL [Concomitant]
     Active Substance: PAROXETINE HYDROCHLORIDE
     Indication: DEPRESSION
     Dates: start: 1997, end: 2005
  15. CITALOPRAM [Concomitant]
     Active Substance: CITALOPRAM HYDROBROMIDE
     Route: 048
     Dates: start: 20120919
  16. CYCLOBENZAPRINE. [Concomitant]
     Active Substance: CYCLOBENZAPRINE
     Route: 048
     Dates: start: 20110110
  17. ROPINIROLE HYDROCHLORIDE. [Concomitant]
     Active Substance: ROPINIROLE HYDROCHLORIDE
     Dates: start: 20110602
  18. ESTRADIOL. [Concomitant]
     Active Substance: ESTRADIOL
     Dates: start: 20110623
  19. CARAFATE [Concomitant]
     Active Substance: SUCRALFATE
     Dates: start: 20130111
  20. NEXIUM [Suspect]
     Active Substance: ESOMEPRAZOLE MAGNESIUM
     Indication: GASTROOESOPHAGEAL REFLUX DISEASE
     Route: 048
     Dates: start: 2000, end: 2015
  21. PROTONIX [Suspect]
     Active Substance: PANTOPRAZOLE SODIUM
     Indication: GASTROOESOPHAGEAL REFLUX DISEASE
     Route: 065
     Dates: start: 2000, end: 2015
  22. PROTONIX [Suspect]
     Active Substance: PANTOPRAZOLE SODIUM
     Indication: GASTROOESOPHAGEAL REFLUX DISEASE
     Route: 065
     Dates: start: 2001, end: 2003
  23. RANITIDINE. [Concomitant]
     Active Substance: RANITIDINE
     Dates: start: 2001, end: 2009
  24. VITAMIN D [Concomitant]
     Active Substance: CHOLECALCIFEROL
     Dosage: PRESENT
  25. LIPITOR [Concomitant]
     Active Substance: ATORVASTATIN CALCIUM
     Route: 048
     Dates: start: 20110324
  26. VISTARIL [Concomitant]
     Active Substance: HYDROXYZINE PAMOATE
     Route: 048
     Dates: start: 20121212
  27. PROMETHAZINE [Concomitant]
     Active Substance: PROMETHAZINE\PROMETHAZINE HYDROCHLORIDE
     Dosage: 12.5 MG PO
     Route: 048
     Dates: start: 20130413
  28. SIMVASTATIN. [Concomitant]
     Active Substance: SIMVASTATIN
     Dosage: 10 MG,EVERY EVENING
     Route: 048
     Dates: start: 20150916
  29. ATORVASTATIN CALCIUM. [Concomitant]
     Active Substance: ATORVASTATIN CALCIUM
     Dates: start: 20140504
  30. CALCIUM [Concomitant]
     Active Substance: CALCIUM
     Dosage: PRESENT
  31. VITAMIN C [Concomitant]
     Active Substance: ASCORBIC ACID
     Dosage: PRESENT
  32. REQUIP [Concomitant]
     Active Substance: ROPINIROLE HYDROCHLORIDE
     Dosage: 1?2 MG, MAX 4 MG PO.
     Route: 048
     Dates: start: 20120213
  33. FLEXERIL [Concomitant]
     Active Substance: CYCLOBENZAPRINE HYDROCHLORIDE
     Route: 048
     Dates: start: 20120213
  34. VALACICLOVIR [Concomitant]
     Active Substance: VALACYCLOVIR HYDROCHLORIDE
     Route: 048
     Dates: start: 20120906
  35. HYDROXYZINE [Concomitant]
     Active Substance: HYDROXYZINE HYDROCHLORIDE
     Route: 048
     Dates: start: 20130413
  36. PRAVASTATIN. [Concomitant]
     Active Substance: PRAVASTATIN
     Route: 048
     Dates: start: 20101119
  37. DOXYCYCLINE HYCLATE. [Concomitant]
     Active Substance: DOXYCYCLINE HYCLATE
     Route: 048
     Dates: start: 20140606
  38. PRAMIPEXOLE. [Concomitant]
     Active Substance: PRAMIPEXOLE
     Route: 048
     Dates: start: 20151021
  39. PRILOSEC [Suspect]
     Active Substance: OMEPRAZOLE MAGNESIUM
     Indication: GASTROOESOPHAGEAL REFLUX DISEASE
     Route: 048
     Dates: start: 20120309, end: 2015
  40. PRAVACHOL [Concomitant]
     Active Substance: PRAVASTATIN SODIUM
     Indication: BLOOD CHOLESTEROL INCREASED
     Dates: start: 1997
  41. ACETAMINOPHEN. [Concomitant]
     Active Substance: ACETAMINOPHEN
     Indication: PAIN
     Dates: start: 20110110
  42. MIRALAX [Concomitant]
     Active Substance: POLYETHYLENE GLYCOL 3350
     Indication: LAXATIVE SUPPORTIVE CARE
     Dates: start: 2014
  43. XANAX [Concomitant]
     Active Substance: ALPRAZOLAM
     Dosage: 1/2 TO 1 BY MOUTH TWICE DAILY AS NEEDED
     Dates: start: 20120213
  44. LISINOPRIL?HYDROCHLOROTHIAZIDE [Concomitant]
     Active Substance: HYDROCHLOROTHIAZIDE\LISINOPRIL
     Dosage: 20?25 MG
     Route: 048
     Dates: start: 20101119
  45. TRAMADOL. [Concomitant]
     Active Substance: TRAMADOL
     Route: 048
     Dates: start: 20140228
  46. CRESTOR [Concomitant]
     Active Substance: ROSUVASTATIN CALCIUM
     Route: 048
     Dates: start: 20071128
  47. NEXIUM [Suspect]
     Active Substance: ESOMEPRAZOLE MAGNESIUM
     Indication: GASTROOESOPHAGEAL REFLUX DISEASE
     Dosage: 40 MG
     Route: 048
     Dates: start: 2002, end: 2015
  48. NEXIUM [Suspect]
     Active Substance: ESOMEPRAZOLE MAGNESIUM
     Indication: GASTROOESOPHAGEAL REFLUX DISEASE
     Route: 065
     Dates: start: 20110221
  49. ATENOLOL. [Concomitant]
     Active Substance: ATENOLOL
     Indication: HYPERTENSION
     Dates: start: 1997, end: 2005
  50. PAXIL [Concomitant]
     Active Substance: PAROXETINE HYDROCHLORIDE
     Indication: ANXIETY
     Dates: start: 1997, end: 2005
  51. CELEXA [Concomitant]
     Active Substance: CITALOPRAM HYDROBROMIDE
     Dosage: DALY
     Route: 048
  52. CIPRO [Concomitant]
     Active Substance: CIPROFLOXACIN HYDROCHLORIDE
  53. ESTRADIOL. [Concomitant]
     Active Substance: ESTRADIOL
     Route: 048
     Dates: start: 20120213
  54. AMITRIPTYLINE HCL [Concomitant]
     Active Substance: AMITRIPTYLINE
     Route: 048
     Dates: start: 20120523
  55. CYCLOBENZAPRINE. [Concomitant]
     Active Substance: CYCLOBENZAPRINE
     Route: 048
     Dates: start: 20130413
  56. OXYBUTYNIN. [Concomitant]
     Active Substance: OXYBUTYNIN CHLORIDE
     Dosage: 5 MG, 0.5 TABLET
     Route: 048
     Dates: start: 20121026
  57. OXYCODONE [Concomitant]
     Active Substance: OXYCODONE
     Route: 048
     Dates: start: 20110319
  58. ZOLPIDEM TARTRATE. [Concomitant]
     Active Substance: ZOLPIDEM TARTRATE
     Route: 048
     Dates: start: 20090203
  59. LEVODOPA [Concomitant]
     Active Substance: LEVODOPA
     Dates: start: 20110110
  60. NORCO [Concomitant]
     Active Substance: ACETAMINOPHEN\HYDROCODONE BITARTRATE
     Route: 048
  61. TRAZODONE HYDROCHLORIDE. [Concomitant]
     Active Substance: TRAZODONE HYDROCHLORIDE
     Route: 048
     Dates: start: 20110110
  62. FUROSEMIDE. [Concomitant]
     Active Substance: FUROSEMIDE
     Route: 048
     Dates: start: 20121219
  63. ALPRAZOLAM. [Concomitant]
     Active Substance: ALPRAZOLAM
     Route: 048
     Dates: start: 20130413
  64. LEVOTHYROXINE. [Concomitant]
     Active Substance: LEVOTHYROXINE
     Dosage: 50 MCG PO DAILY
     Route: 048
     Dates: start: 20130413
  65. POLYETHYLENE GLYCOL [Concomitant]
     Active Substance: POLYETHYLENE GLYCOLS
     Dosage: 17 G PO
     Route: 048
     Dates: start: 20130317
  66. ROPINIROLE. [Concomitant]
     Active Substance: ROPINIROLE
     Dosage: 2 MG PO
     Route: 048
     Dates: start: 20130413
  67. TRAZODONE [Concomitant]
     Active Substance: TRAZODONE HYDROCHLORIDE
     Dosage: 100 MG PO
     Route: 048
     Dates: start: 20130413
  68. MICRO K [Concomitant]
     Route: 048
     Dates: start: 20130304
  69. PRAMIPEXOLE. [Concomitant]
     Active Substance: PRAMIPEXOLE
     Route: 048
     Dates: start: 20140606
  70. CHERATUSSIN AC [Concomitant]
     Active Substance: CODEINE PHOSPHATE\GUAIFENESIN
     Route: 048
     Dates: start: 20140606
  71. OXYCODONE [Concomitant]
     Active Substance: OXYCODONE
     Route: 048
     Dates: start: 20110319
  72. CLINDAMYCIN HYDROCHLORIDE. [Concomitant]
     Active Substance: CLINDAMYCIN HYDROCHLORIDE
     Dates: start: 20110319
  73. FENTANYL. [Concomitant]
     Active Substance: FENTANYL
     Dates: start: 20130219
  74. DEXILANT [Suspect]
     Active Substance: DEXLANSOPRAZOLE
     Indication: GASTROOESOPHAGEAL REFLUX DISEASE
     Route: 065
     Dates: start: 201711
  75. DELTASONE [Concomitant]
     Active Substance: PREDNISONE
     Indication: INFLAMMATION
     Dates: start: 1997
  76. PREMARIN [Concomitant]
     Active Substance: ESTROGENS, CONJUGATED
     Indication: HORMONE LEVEL ABNORMAL
     Dates: start: 1998, end: 2009
  77. ZYRTEC [Concomitant]
     Active Substance: CETIRIZINE HYDROCHLORIDE
     Indication: MULTIPLE ALLERGIES
     Dates: start: 1997
  78. DETROL [Concomitant]
     Active Substance: TOLTERODINE TARTRATE
     Indication: INCONTINENCE
     Dates: start: 1998, end: 2009
  79. CEPHALEXIN. [Concomitant]
     Active Substance: CEPHALEXIN
     Indication: INFECTION
     Dates: start: 1997, end: 2005
  80. LORATADINE. [Concomitant]
     Active Substance: LORATADINE
     Route: 048
     Dates: start: 20130304
  81. PRAVASTATIN. [Concomitant]
     Active Substance: PRAVASTATIN
     Route: 048
     Dates: start: 20140228
  82. PREDNISONE. [Concomitant]
     Active Substance: PREDNISONE
     Route: 048
     Dates: start: 20140415
  83. PENICILLIN V POTASSIUM. [Concomitant]
     Active Substance: PENICILLIN V POTASSIUM
     Dates: start: 20110317
  84. METHYLPREDNISOLONE. [Concomitant]
     Active Substance: METHYLPREDNISOLONE
     Dates: start: 20120727

REACTIONS (2)
  - Chronic kidney disease [Not Recovered/Not Resolved]
  - Renal failure [Not Recovered/Not Resolved]

NARRATIVE: CASE EVENT DATE: 2006
